FAERS Safety Report 13402788 (Version 1)
Quarter: 2017Q2

REPORT INFORMATION
  Report Type: Spontaneous
  Country: US (occurrence: US)
  Receive Date: 20170404
  Receipt Date: 20170404
  Transmission Date: 20170830
  Serious: No
  Sender: FDA-Public Use
  Company Number: US-ROCHE-1855888

PATIENT
  Sex: Male

DRUGS (1)
  1. COTELLIC [Suspect]
     Active Substance: COBIMETINIB
     Indication: APPENDIX CANCER
     Route: 065

REACTIONS (4)
  - Muscle tightness [Unknown]
  - Abdominal pain upper [Unknown]
  - Tremor [Unknown]
  - Discomfort [Unknown]
